FAERS Safety Report 5752541-2 (Version None)
Quarter: 2008Q2

REPORT INFORMATION
  Report Type: 
  Country: None (occurrence: None)
  Receive Date: 20080529
  Receipt Date: 20080520
  Transmission Date: 20081010
  Serious: Yes (Hospitalization, Other)
  Sender: FDA-Public Use
  Company Number: PHHO2008US01845

PATIENT
  Sex: Male
  Weight: 78 kg

DRUGS (10)
  1. CYCLOSPORINE [Suspect]
     Dosage: UNKNOWN
     Route: 048
     Dates: start: 20060920, end: 20061004
  2. VORICONAZOLE [Suspect]
     Dosage: 400 MG, QD
     Route: 048
     Dates: start: 20060926, end: 20060926
  3. VORICONAZOLE [Suspect]
     Dosage: 200 MG, BID
     Route: 048
     Dates: start: 20060927, end: 20061002
  4. VORICONAZOLE [Suspect]
     Dosage: 200 MG, QD
     Route: 048
     Dates: start: 20061003, end: 20061003
  5. VANCOMYCIN HYDROCHLORIDE [Suspect]
     Route: 042
     Dates: start: 20060927, end: 20060929
  6. CELLCEPT [Concomitant]
  7. PROZAC [Concomitant]
  8. ZELITREX [Concomitant]
  9. LYSANXIA [Concomitant]
  10. AMPHOTERICIN B [Concomitant]

REACTIONS (8)
  - CHOLESTASIS [None]
  - FLUID OVERLOAD [None]
  - HYPOTENSION [None]
  - NEPHROPATHY TOXIC [None]
  - PULMONARY OEDEMA [None]
  - PYREXIA [None]
  - SEPSIS [None]
  - WEIGHT INCREASED [None]
